FAERS Safety Report 8883805 (Version 3)
Quarter: 2013Q1

REPORT INFORMATION
  Report Type: Spontaneous
  Country: PR (occurrence: PR)
  Receive Date: 20121102
  Receipt Date: 20130110
  Transmission Date: 20140127
  Serious: Yes (Other)
  Sender: FDA-Public Use
  Company Number: PR-ABBOTT-12P-131-1001957-00

PATIENT
  Age: 57 None
  Sex: Female
  Weight: 93.07 kg

DRUGS (7)
  1. HUMIRA [Suspect]
     Indication: RHEUMATOID ARTHRITIS
     Route: 058
     Dates: end: 201210
  2. LEVOXYL [Concomitant]
     Indication: THYROID DISORDER
     Route: 048
  3. JANUVIA [Concomitant]
     Indication: DIABETES MELLITUS
     Route: 048
  4. LANTUS [Concomitant]
     Indication: DIABETES MELLITUS
     Route: 030
  5. HUMALOG [Concomitant]
     Indication: DIABETES MELLITUS
     Dosage: 10-20 UNIT DAILY
     Route: 030
  6. ISORDIL [Concomitant]
     Indication: CARDIAC DISORDER
     Route: 048
  7. NITROGLYCERIN [Concomitant]
     Indication: CARDIAC DISORDER
     Route: 060

REACTIONS (7)
  - Osteoarthritis [Recovered/Resolved]
  - Myocardial infarction [Recovered/Resolved]
  - Myocardial infarction [Recovered/Resolved]
  - Gingival infection [Recovering/Resolving]
  - Drug ineffective [Not Recovered/Not Resolved]
  - Red blood cell sedimentation rate increased [Unknown]
  - Rheumatoid arthritis [Unknown]
